FAERS Safety Report 7336237-1 (Version None)
Quarter: 2011Q1

REPORT INFORMATION
  Report Type: 
  Country: None (occurrence: None)
  Receive Date: 20110307
  Receipt Date: 20110209
  Transmission Date: 20110831
  Serious: No
  Sender: FDA-Public Use
  Company Number: US-B.I. PHARMACEUTICALS,INC./RIDGEFIELD-2011-BP-05360BP

PATIENT
  Age: 82 Year
  Sex: Female

DRUGS (6)
  1. PROCARDIA XL [Concomitant]
     Indication: HYPERTENSION
  2. CALCIUM [Concomitant]
     Indication: OSTEOPOROSIS
  3. PRADAXA [Suspect]
     Indication: CEREBROVASCULAR ACCIDENT PROPHYLAXIS
  4. LIPITOR [Concomitant]
     Indication: BLOOD CHOLESTEROL INCREASED
  5. PRADAXA [Suspect]
     Indication: ATRIAL FIBRILLATION
     Dosage: 300 MG
     Route: 048
     Dates: start: 20110115
  6. CARVEDILOL [Concomitant]

REACTIONS (1)
  - MUSCLE SPASMS [None]
